FAERS Safety Report 17298368 (Version 1)
Quarter: 2020Q1

REPORT INFORMATION
  Report Type: Spontaneous
  Country: JP (occurrence: JP)
  Receive Date: 20200122
  Receipt Date: 20200122
  Transmission Date: 20200409
  Serious: Yes (Hospitalization, Other)
  Sender: FDA-Public Use
  Company Number: NVSJ2020JP000579

PATIENT
  Age: 55 Year
  Sex: Female

DRUGS (1)
  1. ZOLEDRONIC ACID [Suspect]
     Active Substance: ZOLEDRONIC ACID
     Indication: PLASMA CELL MYELOMA
     Dosage: UNK
     Route: 041

REACTIONS (11)
  - Proteinuria [Unknown]
  - Renal tubular disorder [Unknown]
  - Appendicitis [Recovering/Resolving]
  - Rash [Unknown]
  - Blood urine present [Unknown]
  - Diarrhoea [Unknown]
  - Back pain [Unknown]
  - Blood creatinine increased [Recovering/Resolving]
  - Haematuria [Unknown]
  - Henoch-Schonlein purpura nephritis [Unknown]
  - Abdominal pain [Unknown]
